FAERS Safety Report 23167845 (Version 1)
Quarter: 2023Q4

REPORT INFORMATION
  Report Type: Report from Study
  Country: US (occurrence: US)
  Receive Date: 20231109
  Receipt Date: 20231109
  Transmission Date: 20240110
  Serious: Yes (Hospitalization, Other)
  Sender: FDA-Public Use
  Company Number: US-AstraZeneca-CH-00500597A

PATIENT

DRUGS (1)
  1. ULTOMIRIS [Suspect]
     Active Substance: RAVULIZUMAB-CWVZ
     Indication: Myasthenia gravis
     Dosage: UNK
     Route: 065

REACTIONS (7)
  - Dysphagia [Unknown]
  - Choking [Unknown]
  - Restless legs syndrome [Unknown]
  - Cyst [Unknown]
  - Gait disturbance [Unknown]
  - Dysstasia [Unknown]
  - Head discomfort [Unknown]
